FAERS Safety Report 17985112 (Version 1)
Quarter: 2020Q3

REPORT INFORMATION
  Report Type: Spontaneous
  Country: ZA (occurrence: ZA)
  Receive Date: 20200706
  Receipt Date: 20200706
  Transmission Date: 20201103
  Serious: Yes (Other)
  Sender: FDA-Public Use
  Company Number: ZA-GLAXOSMITHKLINE-ZA2020115023

PATIENT

DRUGS (1)
  1. GRANDPA [Suspect]
     Active Substance: ACETAMINOPHEN\ASPIRIN\CAFFEINE
     Indication: HEADACHE
     Dosage: UNK

REACTIONS (3)
  - Cerebrovascular accident [Unknown]
  - Ulcer [Unknown]
  - Product use issue [Unknown]
